FAERS Safety Report 12060510 (Version 1)
Quarter: 2016Q1

REPORT INFORMATION
  Report Type: Spontaneous
  Country: US (occurrence: US)
  Receive Date: 20160210
  Receipt Date: 20160210
  Transmission Date: 20160526
  Serious: No
  Sender: FDA-Public Use
  Company Number: US-CELGENEUS-USA-2016021471

PATIENT
  Age: 36 Year
  Sex: Male

DRUGS (2)
  1. LORATADINE-D [Concomitant]
     Indication: PRODUCT USED FOR UNKNOWN INDICATION
     Route: 065
  2. OTEZLA [Suspect]
     Active Substance: APREMILAST
     Indication: PSORIATIC ARTHROPATHY
     Dosage: 60 MILLIGRAM
     Route: 048

REACTIONS (5)
  - Ear infection [Unknown]
  - Depression [Unknown]
  - Impatience [Unknown]
  - Fatigue [Unknown]
  - Mood altered [Unknown]
